FAERS Safety Report 10652102 (Version 1)
Quarter: 2014Q4

REPORT INFORMATION
  Report Type: Spontaneous
  Country: US (occurrence: US)
  Receive Date: 20141215
  Receipt Date: 20141215
  Transmission Date: 20150529
  Serious: Yes (Other)
  Sender: FDA-Public Use
  Company Number: US-PFIZER INC-2014343441

PATIENT
  Age: 66 Year
  Sex: Male
  Weight: 67 kg

DRUGS (1)
  1. VIAGRA [Suspect]
     Active Substance: SILDENAFIL CITRATE
     Indication: ERECTILE DYSFUNCTION
     Dosage: 100 MG, SINGLE
     Route: 048
     Dates: start: 20141207, end: 20141207

REACTIONS (3)
  - Heart rate irregular [Not Recovered/Not Resolved]
  - Erection increased [Recovered/Resolved]
  - Anorgasmia [Recovered/Resolved]

NARRATIVE: CASE EVENT DATE: 20141207
